FAERS Safety Report 19614737 (Version 5)
Quarter: 2022Q4

REPORT INFORMATION
  Report Type: Report from Study
  Country: GB (occurrence: GB)
  Receive Date: 20210727
  Receipt Date: 20221212
  Transmission Date: 20230112
  Serious: Yes (Other)
  Sender: FDA-Public Use
  Company Number: GB-ROCHE-1714641

PATIENT
  Age: 60 Year
  Sex: Female

DRUGS (44)
  1. LETROZOLE [Suspect]
     Active Substance: LETROZOLE
     Indication: Breast cancer metastatic
     Dosage: UNK
     Route: 065
  2. LETROZOLE [Suspect]
     Active Substance: LETROZOLE
     Indication: HER2 positive breast cancer
     Dosage: 2.5 MICROGRAM, QD
     Route: 048
     Dates: start: 20160329
  3. DENOSUMAB [Suspect]
     Active Substance: DENOSUMAB
     Indication: Breast cancer metastatic
     Dosage: 120 MILLIGRAM (120MG)
     Route: 058
     Dates: start: 20151201
  4. DENOSUMAB [Suspect]
     Active Substance: DENOSUMAB
     Indication: HER2 positive breast cancer
     Dosage: 120 MILLIGRAM (120MG)
     Route: 058
     Dates: start: 20151201
  5. DENOSUMAB [Suspect]
     Active Substance: DENOSUMAB
     Dosage: UNK
     Route: 065
  6. DENOSUMAB [Suspect]
     Active Substance: DENOSUMAB
     Dosage: UNK
     Route: 065
  7. TAXOTERE [Suspect]
     Active Substance: DOCETAXEL
     Indication: Breast cancer
     Dosage: 148 MILLIGRAM, Q3W
     Route: 042
     Dates: start: 20160105, end: 20160218
  8. TAXOTERE [Suspect]
     Active Substance: DOCETAXEL
     Dosage: 140 MILLIGRAM, Q3W
     Route: 042
     Dates: start: 20160310
  9. PERTUZUMAB [Suspect]
     Active Substance: PERTUZUMAB
     Indication: HER2 positive breast cancer
     Dosage: 840 MILLIGRAM, Q3W (EVERY 3 WEEKS)
     Route: 042
     Dates: start: 20160104, end: 20160128
  10. PERTUZUMAB [Suspect]
     Active Substance: PERTUZUMAB
     Indication: Breast cancer metastatic
     Dosage: UNK
     Route: 065
  11. PERTUZUMAB [Suspect]
     Active Substance: PERTUZUMAB
     Dosage: 420 MILLIGRAM, Q3W (EVERY 3 WEEKS)
     Route: 042
     Dates: start: 20160218
  12. DOCETAXEL [Suspect]
     Active Substance: DOCETAXEL
     Indication: Breast cancer metastatic
     Dosage: 148 MILLIGRAM, Q3W
     Route: 042
     Dates: start: 20160105, end: 20160218
  13. DOCETAXEL [Suspect]
     Active Substance: DOCETAXEL
     Dosage: 140 MILLIGRAM, Q3W
     Route: 042
     Dates: start: 20160105, end: 20160310
  14. DOCETAXEL [Suspect]
     Active Substance: DOCETAXEL
     Dosage: 148 MILLIGRAM, Q3W
     Route: 042
     Dates: start: 20160310, end: 20160310
  15. DOCETAXEL [Suspect]
     Active Substance: DOCETAXEL
     Dosage: 140 MILLIGRAM, Q3W
     Route: 042
     Dates: start: 20160310
  16. TRASTUZUMAB [Suspect]
     Active Substance: TRASTUZUMAB
     Indication: HER2 positive breast cancer
     Dosage: 450 MG, Q3W (EVERY 3 WEEKS)
     Route: 042
     Dates: start: 20160310, end: 20160804
  17. TRASTUZUMAB [Suspect]
     Active Substance: TRASTUZUMAB
     Indication: Breast cancer metastatic
     Dosage: 675 MILLIGRAM, Q3W (EVERY 3 WEEKS)
     Route: 042
     Dates: start: 20160104, end: 20160128
  18. TRASTUZUMAB [Suspect]
     Active Substance: TRASTUZUMAB
     Dosage: 525 MILLIGRAM, Q3W (EVERY 3 WEEKS)
     Route: 042
     Dates: start: 20160128, end: 20160218
  19. TRASTUZUMAB [Suspect]
     Active Substance: TRASTUZUMAB
     Dosage: 400 MG, Q3W (EVERY 3 WEEKS)
     Route: 042
     Dates: start: 20160825, end: 20180705
  20. TRASTUZUMAB [Suspect]
     Active Substance: TRASTUZUMAB
     Dosage: 378 MILLIGRAM, Q3W (EVERY 3 WEEKS)
     Route: 042
     Dates: start: 20200124
  21. TRASTUZUMAB [Suspect]
     Active Substance: TRASTUZUMAB
     Dosage: 336 MILLIGRAM, Q3W
     Route: 042
     Dates: start: 20200515, end: 20200918
  22. TRASTUZUMAB [Suspect]
     Active Substance: TRASTUZUMAB
     Dosage: 441 MILLIGRAM, Q3W
     Route: 042
     Dates: start: 20180726, end: 20200103
  23. TRASTUZUMAB [Suspect]
     Active Substance: TRASTUZUMAB
     Dosage: 378 MILLIGRAM, Q3W (STOP DATE: 24-DEC-2021)
     Route: 042
     Dates: start: 20201009
  24. ANASTROZOLE [Suspect]
     Active Substance: ANASTROZOLE
     Indication: Breast cancer metastatic
     Dosage: 1 MILLIGRAM, QD
     Route: 048
     Dates: start: 20211130
  25. ADO-TRASTUZUMAB EMTANSINE [Suspect]
     Active Substance: ADO-TRASTUZUMAB EMTANSINE
     Indication: Breast cancer metastatic
     Dosage: 240 MILLIGRAM, Q3W
     Route: 042
     Dates: start: 20220114, end: 20220204
  26. ADO-TRASTUZUMAB EMTANSINE [Suspect]
     Active Substance: ADO-TRASTUZUMAB EMTANSINE
     Dosage: 200 MILLIGRAM, Q3W (START DATE: 25-FEB-2022)
     Route: 042
  27. TAMOXIFEN [Suspect]
     Active Substance: TAMOXIFEN
     Indication: Breast cancer metastatic
     Dosage: 20 MILLIGRAM, QD
     Route: 048
     Dates: start: 20200606, end: 20211130
  28. CALCIUM\CHOLECALCIFEROL [Concomitant]
     Active Substance: CALCIUM\CHOLECALCIFEROL
     Indication: Product used for unknown indication
     Dosage: 1 DOSAGE FORM, BID (1 DF, 2X/DAY (ALSO REPORTED AS 2 DF, DAILY))
     Route: 048
     Dates: start: 20160101
  29. CALCIUM\CHOLECALCIFEROL [Concomitant]
     Active Substance: CALCIUM\CHOLECALCIFEROL
     Dosage: 1 DOSAGE FORM, BID (1 TABLET(FREQUENCY: 0.5 DAY))
     Route: 048
     Dates: start: 20160101
  30. DEXAMETHASONE [Concomitant]
     Active Substance: DEXAMETHASONE
     Indication: Anal incontinence
     Dosage: 16 MILLIGRAM, QD, 16 MG, QD
     Route: 048
     Dates: start: 20160127
  31. DEXAMETHASONE [Concomitant]
     Active Substance: DEXAMETHASONE
     Indication: Paraesthesia
     Dosage: 8 MILLIGRAM, BID 8 MG
     Route: 048
     Dates: start: 20160103, end: 20160105
  32. DEXAMETHASONE [Concomitant]
     Active Substance: DEXAMETHASONE
     Dosage: 8 MILLIGRAM, BID, 8 MG
     Route: 048
     Dates: start: 20160127, end: 20160129
  33. DEXAMETHASONE [Concomitant]
     Active Substance: DEXAMETHASONE
     Dosage: 16 MILLIGRAM, QD, 16 MG,QD
     Route: 048
     Dates: start: 20160103
  34. DEXAMETHASONE [Concomitant]
     Active Substance: DEXAMETHASONE
     Dosage: 2 MILLIGRAM
     Route: 065
     Dates: start: 20220113, end: 20220225
  35. DEXAMETHASONE [Concomitant]
     Active Substance: DEXAMETHASONE
     Dosage: 4 MILLIGRAM
     Route: 065
     Dates: start: 20211130
  36. DEXAMETHASONE [Concomitant]
     Active Substance: DEXAMETHASONE
     Dosage: 8 MILLIGRAM
     Route: 065
     Dates: start: 20211123, end: 20211129
  37. DEXAMETHASONE [Concomitant]
     Active Substance: DEXAMETHASONE
     Dosage: 8 MILLIGRAM
     Route: 065
     Dates: start: 20211116, end: 20211122
  38. DEXAMETHASONE [Concomitant]
     Active Substance: DEXAMETHASONE
     Dosage: 1 MILLIGRAM, QD
     Route: 048
     Dates: start: 20220225
  39. DEXAMETHASONE [Concomitant]
     Active Substance: DEXAMETHASONE
     Dosage: 10 MILLIGRAM
     Route: 065
     Dates: start: 20211116, end: 20211122
  40. LANSOPRAZOLE [Concomitant]
     Active Substance: LANSOPRAZOLE
     Indication: Product used for unknown indication
     Dosage: 30 MILLIGRAM, QD, 30 MG,QD
     Route: 048
     Dates: start: 20151229, end: 20160105
  41. ASTRAZENECA COVID-19 VACCINE [Concomitant]
     Active Substance: AZD-1222
     Indication: COVID-19
     Dosage: UNK (FIRST DOSE SECOND DOSE IN 12 WEEKS)
     Route: 030
     Dates: start: 20210131, end: 20210131
  42. ASTRAZENECA COVID-19 VACCINE [Concomitant]
     Active Substance: AZD-1222
     Dosage: UNK
     Route: 065
  43. NITROFURANTOIN [Concomitant]
     Active Substance: NITROFURANTOIN
     Dosage: UNK (65)
     Route: 065
     Dates: start: 20220429, end: 20220503
  44. AMOXICILLIN\CLAVULANATE POTASSIUM [Concomitant]
     Active Substance: AMOXICILLIN\CLAVULANATE POTASSIUM
     Dosage: UNK (125)
     Route: 065
     Dates: start: 20220504, end: 20220510

REACTIONS (10)
  - Neuropathy peripheral [Recovered/Resolved]
  - Ejection fraction decreased [Recovered/Resolved]
  - Onychalgia [Recovered/Resolved]
  - Hypomagnesaemia [Recovered/Resolved]
  - Arthralgia [Not Recovered/Not Resolved]
  - Fatigue [Recovered/Resolved]
  - Diarrhoea [Not Recovered/Not Resolved]
  - Nausea [Recovered/Resolved]
  - Rash [Recovered/Resolved]
  - Urinary tract infection [Recovered/Resolved]

NARRATIVE: CASE EVENT DATE: 20160101
